FAERS Safety Report 9462806 (Version 4)
Quarter: 2014Q1

REPORT INFORMATION
  Report Type: Report from Study
  Country: GB (occurrence: GB)
  Receive Date: 20130816
  Receipt Date: 20140212
  Transmission Date: 20141002
  Serious: Yes (Hospitalization)
  Sender: FDA-Public Use
  Company Number: GB-ROCHE-1262176

PATIENT
  Age: 47 Year
  Sex: Female
  Weight: 107.4 kg

DRUGS (4)
  1. VEMURAFENIB [Suspect]
     Indication: METASTATIC MALIGNANT MELANOMA
     Dosage: DATE OF MOST RECENT DOSE OF VEMURAFENIB PRIOR TO AE ONSET: 23/OCT/2013
     Route: 048
     Dates: start: 20130724
  2. VEMURAFENIB [Suspect]
     Dosage: DOSE OF LAST VEMURAFENIB: 480 MG
     Route: 048
  3. RAMIPRIL [Concomitant]
     Indication: HYPERTENSION
     Route: 048
     Dates: start: 2010
  4. METOCLOPRAMIDE [Concomitant]
     Indication: NAUSEA
     Route: 048
     Dates: start: 20130724

REACTIONS (3)
  - Sepsis [Recovered/Resolved]
  - Cellulitis [Not Recovered/Not Resolved]
  - Blood alkaline phosphatase increased [Unknown]
